FAERS Safety Report 24167826 (Version 1)
Quarter: 2024Q3

REPORT INFORMATION
  Report Type: Spontaneous
  Country: US (occurrence: None)
  Receive Date: 20240801
  Receipt Date: 20240801
  Transmission Date: 20241016
  Serious: Yes (Hospitalization)
  Sender: Public
  Company Number: None

PATIENT
  Sex: Female

DRUGS (5)
  1. TADALAFIL [Suspect]
     Active Substance: TADALAFIL
     Indication: Pulmonary arterial hypertension
     Dosage: FREQUENCY : 3 TIMES A DAY;?
     Route: 048
     Dates: start: 202303
  2. REMUNITY CART W/FILL AID [Concomitant]
  3. OFEV [Concomitant]
     Active Substance: NINTEDANIB
  4. MYCOPHENOLATE MOFETIL [Concomitant]
  5. REMODULIN [Concomitant]

REACTIONS (3)
  - Abdominal pain [None]
  - Nausea [None]
  - Vomiting [None]
